FAERS Safety Report 7906691-2 (Version None)
Quarter: 2011Q4

REPORT INFORMATION
  Report Type: 
  Country: None (occurrence: None)
  Receive Date: 20111110
  Receipt Date: 20111108
  Transmission Date: 20120403
  Serious: Yes (Death, Other)
  Sender: FDA-Public Use
  Company Number: JP-JNJFOC-20100801579

PATIENT
  Sex: Female
  Weight: 49 kg

DRUGS (13)
  1. DOXORUBICIN HCL [Suspect]
     Dosage: COURSE 10
     Route: 042
     Dates: start: 20110301, end: 20110301
  2. DOXORUBICIN HCL [Suspect]
     Dosage: COURSE 4
     Route: 042
     Dates: start: 20100115, end: 20100115
  3. DOXORUBICIN HCL [Suspect]
     Dosage: COURSE 5
     Route: 042
     Dates: start: 20100219, end: 20100219
  4. DOXORUBICIN HCL [Suspect]
     Dosage: COURSE 6
     Route: 042
     Dates: start: 20100326, end: 20100326
  5. SULFADIAZINE [Concomitant]
     Indication: PRODUCT USED FOR UNKNOWN INDICATION
     Route: 061
     Dates: start: 20091126
  6. DOXORUBICIN HCL [Suspect]
     Dosage: COURSE 1
     Route: 042
     Dates: start: 20091015, end: 20091015
  7. DOXORUBICIN HCL [Suspect]
     Indication: OVARIAN CANCER RECURRENT
     Dosage: COURSE 9
     Route: 042
     Dates: start: 20110107, end: 20110107
  8. DOXORUBICIN HCL [Suspect]
     Dosage: COURSE 8
     Route: 042
     Dates: start: 20101130, end: 20101130
  9. DIOVAN [Concomitant]
     Indication: PRODUCT USED FOR UNKNOWN INDICATION
     Route: 048
     Dates: start: 20100421
  10. DOXORUBICIN HCL [Suspect]
     Dosage: COURSE 7
     Route: 042
     Dates: start: 20100928, end: 20100928
  11. DOXORUBICIN HCL [Suspect]
     Dosage: COURSE 2
     Route: 042
     Dates: start: 20091112, end: 20091112
  12. DOXORUBICIN HCL [Suspect]
     Dosage: COURSE 3
     Route: 042
     Dates: start: 20091218, end: 20091218
  13. XYLOCAINE [Concomitant]
     Indication: PRODUCT USED FOR UNKNOWN INDICATION
     Route: 002
     Dates: start: 20091030, end: 20100528

REACTIONS (3)
  - PERICARDIAL EFFUSION [None]
  - PLEURAL EFFUSION [None]
  - OVARIAN CANCER RECURRENT [None]
